FAERS Safety Report 5451527-5 (Version None)
Quarter: 2007Q3

REPORT INFORMATION
  Report Type: 
  Country: None (occurrence: None)
  Receive Date: 20070913
  Receipt Date: 20070905
  Transmission Date: 20080115
  Serious: Yes (Death, Hospitalization)
  Sender: FDA-Public Use
  Company Number: HQWYE021706SEP07

PATIENT
  Sex: Female

DRUGS (1)
  1. TRIONETTA [Suspect]
     Indication: ORAL CONTRACEPTION
     Dosage: UNKNOWN
     Route: 048

REACTIONS (3)
  - DEEP VEIN THROMBOSIS [None]
  - PULMONARY EMBOLISM [None]
  - SHOCK [None]
